FAERS Safety Report 4778824-0 (Version None)
Quarter: 2005Q3

REPORT INFORMATION
  Report Type: 
  Country: None (occurrence: None)
  Receive Date: 20050922
  Receipt Date: 20050912
  Transmission Date: 20060218
  Serious: Yes (Disabling, Other)
  Sender: FDA-Public Use
  Company Number: 200510853BVD

PATIENT
  Age: 68 Year
  Sex: Male

DRUGS (1)
  1. LEVITRA [Suspect]
     Indication: ERECTILE DYSFUNCTION
     Dosage: 5 MG, TOTAL DAILY, ORAL
     Route: 048
     Dates: start: 20050401

REACTIONS (3)
  - ARTERIAL OCCLUSIVE DISEASE [None]
  - BLINDNESS [None]
  - LIPOPROTEIN (A) INCREASED [None]
